FAERS Safety Report 5092622-2 (Version None)
Quarter: 2006Q3

REPORT INFORMATION
  Report Type: 
  Country: None (occurrence: None)
  Receive Date: 20060830
  Receipt Date: 20060818
  Transmission Date: 20061208
  Serious: Yes (Death, Hospitalization)
  Sender: FDA-Public Use
  Company Number: FR-BRISTOL-MYERS SQUIBB COMPANY-13485784

PATIENT
  Age: 60 Year
  Sex: Male

DRUGS (3)
  1. STAVUDINE [Suspect]
  2. DIDANOSINE [Suspect]
  3. TENOFOVIR [Suspect]

REACTIONS (1)
  - PROGRESSIVE MULTIFOCAL LEUKOENCEPHALOPATHY [None]
